FAERS Safety Report 6912128-2 (Version None)
Quarter: 2010Q3

REPORT INFORMATION
  Report Type: 
  Country: None (occurrence: None)
  Receive Date: 20100806
  Receipt Date: 20071227
  Transmission Date: 20110219
  Serious: No
  Sender: FDA-Public Use
  Company Number: US-PFIZER INC-2008000180

PATIENT
  Sex: Female
  Weight: 59.1 kg

DRUGS (2)
  1. DILANTIN [Suspect]
     Indication: CONVULSION
     Dosage: EVERY DAY
  2. VITAMIN TAB [Concomitant]

REACTIONS (1)
  - HEADACHE [None]
